FAERS Safety Report 7767977-8 (Version None)
Quarter: 2011Q3

REPORT INFORMATION
  Report Type: 
  Country: None (occurrence: None)
  Receive Date: 20110922
  Receipt Date: 20100809
  Transmission Date: 20111222
  Serious: Yes (Other)
  Sender: FDA-Public Use
  Company Number: US-ASTRAZENECA-2007UW21478

PATIENT
  Age: 21015 Day
  Sex: Female
  Weight: 91.6 kg

DRUGS (29)
  1. SEROQUEL [Suspect]
     Dosage: 25-50 MG
     Route: 048
     Dates: start: 20011101, end: 20061001
  2. FLUTICASONE PROPIONATE [Concomitant]
  3. PROCARDIA [Concomitant]
  4. SEROQUEL [Suspect]
     Dosage: 25-50 MG
     Route: 048
     Dates: start: 20011101, end: 20061001
  5. SEROQUEL [Suspect]
     Dosage: 25-50 MG
     Route: 048
     Dates: start: 20011101, end: 20061001
  6. ATENOLOL [Concomitant]
  7. GLUCOTROL [Concomitant]
  8. SEROQUEL [Suspect]
     Indication: INSOMNIA
     Route: 048
     Dates: start: 20011115
  9. SEROQUEL [Suspect]
     Dosage: 25 MG- 50 MG
     Route: 048
     Dates: start: 20020101, end: 20061101
  10. LIPITOR [Concomitant]
  11. PANNAZ [Concomitant]
  12. SEROQUEL [Suspect]
     Indication: ANXIETY
     Route: 048
     Dates: start: 20011115
  13. BUSPAR [Concomitant]
  14. PROTONIX [Concomitant]
  15. TRAZODONE HYDROCHLORIDE [Concomitant]
  16. SEROQUEL [Suspect]
     Dosage: 25 MG- 50 MG
     Route: 048
     Dates: start: 20020101, end: 20061101
  17. SEROQUEL [Suspect]
     Dosage: 25 MG- 50 MG
     Route: 048
     Dates: start: 20020101, end: 20061101
  18. SEROQUEL [Suspect]
     Dosage: 25 MG- 50 MG
     Route: 048
     Dates: start: 20020101, end: 20061101
  19. AMLODIPINE [Concomitant]
  20. NABUMETONE [Concomitant]
  21. WELLBUTRIN SR [Concomitant]
  22. SEROQUEL [Suspect]
     Indication: BIPOLAR DISORDER
     Route: 048
     Dates: start: 20011115
  23. ASPIRIN [Concomitant]
  24. CLARINEX [Concomitant]
  25. ZOLOFT [Concomitant]
  26. SEROQUEL [Suspect]
     Indication: DEPRESSION
     Route: 048
     Dates: start: 20011115
  27. SEROQUEL [Suspect]
     Dosage: 25-50 MG
     Route: 048
     Dates: start: 20011101, end: 20061001
  28. LORATADINE [Concomitant]
  29. ZESTORETIC [Concomitant]

REACTIONS (9)
  - BLOOD TRIGLYCERIDES INCREASED [None]
  - HYPERGLYCAEMIA [None]
  - KETOACIDOSIS [None]
  - HYPOGLYCAEMIA [None]
  - DIABETES MELLITUS [None]
  - DIABETIC COMPLICATION [None]
  - DIABETIC COMA [None]
  - BLOOD CHOLESTEROL INCREASED [None]
  - HYPERLIPIDAEMIA [None]
